FAERS Safety Report 5005889-3 (Version None)
Quarter: 2006Q2

REPORT INFORMATION
  Report Type: 
  Country: None (occurrence: None)
  Receive Date: 20060517
  Receipt Date: 20060517
  Transmission Date: 20061013
  Serious: Yes (Hospitalization)
  Sender: FDA-Public Use
  Company Number: None

PATIENT
  Age: 79 Year
  Sex: Male

DRUGS (8)
  1. CARBIDOPA AND LEVODOPA [Suspect]
     Indication: PARKINSON'S DISEASE
     Dosage: 50/200 QID
     Dates: start: 19980901
  2. MEMANTINE HCL [Suspect]
     Indication: DEMENTIA ALZHEIMER'S TYPE
     Dosage: 5 MG BID
     Dates: start: 20050301
  3. MIRTAZAPINE [Concomitant]
  4. MIDODRINE HYDROCHLORIDE [Concomitant]
  5. SELEGILINE HCL [Concomitant]
  6. TAMSULOSIN HCL [Concomitant]
  7. PLAVIX [Concomitant]
  8. GALANTAMINE HYDROBROMIDE [Concomitant]

REACTIONS (2)
  - AGITATION [None]
  - CONVULSION [None]
